FAERS Safety Report 5309166-2 (Version None)
Quarter: 2007Q2

REPORT INFORMATION
  Report Type: 
  Country: None (occurrence: None)
  Receive Date: 20070423
  Receipt Date: 20070416
  Transmission Date: 20071010
  Serious: No
  Sender: FDA-Public Use
  Company Number: C-07-0015

PATIENT
  Age: 4 Year
  Sex: 0

DRUGS (1)
  1. FERROUS SUL TAB [Suspect]

REACTIONS (1)
  - VOMITING [None]
